FAERS Safety Report 6895743-4 (Version None)
Quarter: 2010Q3

REPORT INFORMATION
  Report Type: 
  Country: None (occurrence: None)
  Receive Date: 20100730
  Receipt Date: 20100730
  Transmission Date: 20110219
  Serious: Yes (Other)
  Sender: FDA-Public Use
  Company Number: None

PATIENT
  Age: 65 Year
  Sex: Male
  Weight: 58 kg

DRUGS (2)
  1. AMIODARONE HCL [Suspect]
     Indication: ATRIAL FIBRILLATION
     Dosage: 150MG X1 IV BOLUS
     Route: 040
     Dates: start: 20100723, end: 20100727
  2. AMIODARONE HCL [Suspect]
     Dosage: 400MG BID PO
     Route: 048

REACTIONS (1)
  - HEPATOTOXICITY [None]
